FAERS Safety Report 4539461-6 (Version None)
Quarter: 2004Q4

REPORT INFORMATION
  Report Type: 
  Country: None (occurrence: None)
  Receive Date: 20041222
  Receipt Date: 20041213
  Transmission Date: 20050328
  Serious: No
  Sender: FDA-Public Use
  Company Number: 2004AC00994

PATIENT
  Weight: 3.75 kg

DRUGS (5)
  1. LIDOCAINE [Suspect]
     Indication: CONVULSION
     Dosage: 2 MG/KG ONCE IV
     Route: 042
  2. LIDOCAINE [Suspect]
     Indication: CONVULSION
     Dosage: 6 MG/KG /HR IV
     Route: 042
  3. LIDOCAINE [Suspect]
     Indication: CONVULSION
     Dosage: DOSE TAILED OFF
  4. PHENOBARBITAL TAB [Concomitant]
  5. MIDAZOLAM HCL [Concomitant]

REACTIONS (2)
  - ATRIOVENTRICULAR BLOCK [None]
  - BRADYCARDIA [None]
